FAERS Safety Report 8066821-1 (Version None)
Quarter: 2012Q1

REPORT INFORMATION
  Report Type: 
  Country: None (occurrence: None)
  Receive Date: 20120124
  Receipt Date: 20120118
  Transmission Date: 20120608
  Serious: Yes (Other)
  Sender: FDA-Public Use
  Company Number: PHEH2011US04567

PATIENT
  Sex: Male

DRUGS (3)
  1. GILENYA [Suspect]
     Indication: MULTIPLE SCLEROSIS
     Dosage: 0.5 MG, DAILY
     Route: 048
     Dates: start: 20110909, end: 20110915
  2. WELLBUTRIN [Concomitant]
  3. CELEXA [Concomitant]
     Indication: DEPRESSION
     Dosage: 10 MG, QD
     Route: 048
     Dates: start: 20110223

REACTIONS (10)
  - RETCHING [None]
  - NAUSEA [None]
  - PNEUMONIA [None]
  - VOMITING [None]
  - VISUAL ACUITY REDUCED [None]
  - HEADACHE [None]
  - EYE PAIN [None]
  - UPPER RESPIRATORY TRACT INFECTION [None]
  - HEART RATE DECREASED [None]
  - FATIGUE [None]
